FAERS Safety Report 13527269 (Version 4)
Quarter: 2017Q3

REPORT INFORMATION
  Report Type: Report from Study
  Country: FR (occurrence: FR)
  Receive Date: 20170509
  Receipt Date: 20170811
  Transmission Date: 20171127
  Serious: Yes (Life-Threatening, Other)
  Sender: FDA-Public Use
  Company Number: FR-AMGEN-FRANI2017043378

PATIENT
  Age: 72 Year
  Sex: Male
  Weight: 93 kg

DRUGS (34)
  1. CARFILZOMIB [Suspect]
     Active Substance: CARFILZOMIB
     Dosage: 112 MG, UNK
     Route: 042
     Dates: start: 20170228, end: 20170228
  2. CARFILZOMIB [Suspect]
     Active Substance: CARFILZOMIB
     Dosage: 112 MG, UNK
     Route: 042
     Dates: start: 20170321, end: 20170321
  3. CARFILZOMIB [Suspect]
     Active Substance: CARFILZOMIB
     Dosage: 112 MG, UNK
     Route: 042
     Dates: start: 20170523, end: 20170523
  4. CARFILZOMIB [Suspect]
     Active Substance: CARFILZOMIB
     Dosage: 112 MG, UNK
     Route: 042
     Dates: start: 20170424, end: 20170424
  5. CARFILZOMIB [Suspect]
     Active Substance: CARFILZOMIB
     Dosage: 90 MG, UNK
     Route: 042
     Dates: start: 20170620, end: 20170620
  6. CARFILZOMIB [Suspect]
     Active Substance: CARFILZOMIB
     Dosage: 112 MG, UNK
     Route: 042
     Dates: start: 20170418, end: 20170418
  7. CARFILZOMIB [Suspect]
     Active Substance: CARFILZOMIB
     Dosage: 112 MG, UNK
     Route: 042
     Dates: start: 20170515, end: 20170515
  8. CARFILZOMIB [Suspect]
     Active Substance: CARFILZOMIB
     Dosage: 112 MG, UNK
     Route: 042
     Dates: start: 20170516, end: 20170516
  9. CARFILZOMIB [Suspect]
     Active Substance: CARFILZOMIB
     Dosage: 114 MG, UNK
     Route: 042
     Dates: start: 20170613, end: 20170613
  10. CARFILZOMIB [Suspect]
     Active Substance: CARFILZOMIB
     Dosage: 114 MG, UNK
     Route: 042
     Dates: start: 20170614, end: 20170614
  11. CARFILZOMIB [Suspect]
     Active Substance: CARFILZOMIB
     Dosage: 112 MG, UNK
     Route: 042
     Dates: start: 20170411, end: 20170411
  12. CARFILZOMIB [Suspect]
     Active Substance: CARFILZOMIB
     Dosage: 114 MG, UNK
     Route: 042
     Dates: start: 20170607, end: 20170607
  13. CARFILZOMIB [Suspect]
     Active Substance: CARFILZOMIB
     Dosage: 90 MG, UNK
     Route: 042
     Dates: start: 20170619, end: 20170619
  14. CARFILZOMIB [Suspect]
     Active Substance: CARFILZOMIB
     Indication: PLASMA CELL MYELOMA
     Dosage: UNK
     Route: 065
     Dates: start: 20170127
  15. CARFILZOMIB [Suspect]
     Active Substance: CARFILZOMIB
     Dosage: 40.365 MG, UNK
     Route: 042
     Dates: start: 20170214, end: 20170214
  16. CARFILZOMIB [Suspect]
     Active Substance: CARFILZOMIB
     Dosage: 112.785 MG, UNK
     Route: 042
     Dates: start: 20170220, end: 20170220
  17. CARFILZOMIB [Suspect]
     Active Substance: CARFILZOMIB
     Dosage: 112 MG, UNK
     Route: 042
     Dates: start: 20170313, end: 20170313
  18. CARFILZOMIB [Suspect]
     Active Substance: CARFILZOMIB
     Dosage: 112 MG, UNK
     Route: 042
     Dates: start: 20170320, end: 20170320
  19. CARFILZOMIB [Suspect]
     Active Substance: CARFILZOMIB
     Dosage: 112 MG, UNK
     Route: 042
     Dates: start: 20170410, end: 20170410
  20. CARFILZOMIB [Suspect]
     Active Substance: CARFILZOMIB
     Dosage: 113 MG, UNK
     Route: 042
     Dates: start: 20170509, end: 20170509
  21. CARFILZOMIB [Suspect]
     Active Substance: CARFILZOMIB
     Dosage: 112 MG, UNK
     Route: 042
     Dates: start: 20170522, end: 20170522
  22. DEXAMETHASONE. [Concomitant]
     Active Substance: DEXAMETHASONE
     Indication: PLASMA CELL MYELOMA
     Dosage: 20 MG, DAY 01, 02, 08, 09, 15, AND 16.
     Dates: start: 20170126
  23. CARFILZOMIB [Suspect]
     Active Substance: CARFILZOMIB
     Dosage: 112 MG, UNK
     Route: 042
     Dates: start: 20170314, end: 20170314
  24. CARFILZOMIB [Suspect]
     Active Substance: CARFILZOMIB
     Dosage: 112 MG, UNK
     Route: 042
     Dates: start: 20170327, end: 20170327
  25. CARFILZOMIB [Suspect]
     Active Substance: CARFILZOMIB
     Dosage: 112 MG, UNK
     Route: 042
     Dates: start: 20170419, end: 20170419
  26. CARFILZOMIB [Suspect]
     Active Substance: CARFILZOMIB
     Dosage: 40.365 MG, UNK
     Route: 042
     Dates: start: 20170213, end: 20170213
  27. CARFILZOMIB [Suspect]
     Active Substance: CARFILZOMIB
     Dosage: 112.785 MG, UNK
     Route: 042
     Dates: start: 20170221, end: 20170221
  28. CARFILZOMIB [Suspect]
     Active Substance: CARFILZOMIB
     Dosage: 112 MG, UNK
     Route: 042
     Dates: start: 20170328, end: 20170328
  29. CARFILZOMIB [Suspect]
     Active Substance: CARFILZOMIB
     Dosage: 113.12 MG, UNK
     Route: 042
     Dates: start: 20170510, end: 20170510
  30. CARFILZOMIB [Suspect]
     Active Substance: CARFILZOMIB
     Dosage: 114 MG, UNK
     Route: 042
     Dates: start: 20170606, end: 20170606
  31. CARFILZOMIB [Suspect]
     Active Substance: CARFILZOMIB
     Dosage: 90 MG, UNK
     Route: 042
     Dates: start: 20170704
  32. CARFILZOMIB [Suspect]
     Active Substance: CARFILZOMIB
     Dosage: 112 MG, UNK
     Route: 042
     Dates: start: 20170227, end: 20170227
  33. CARFILZOMIB [Suspect]
     Active Substance: CARFILZOMIB
     Dosage: 112 MG, UNK
     Route: 042
     Dates: start: 20170425, end: 20170425
  34. CARFILZOMIB [Suspect]
     Active Substance: CARFILZOMIB
     Dosage: 90 MG, UNK
     Route: 042
     Dates: start: 20170703, end: 20170703

REACTIONS (4)
  - Thrombocytopenia [Recovered/Resolved]
  - Cardiac failure [Not Recovered/Not Resolved]
  - Diarrhoea [Recovering/Resolving]
  - Fatigue [Recovering/Resolving]

NARRATIVE: CASE EVENT DATE: 20170227
